FAERS Safety Report 12949328 (Version 1)
Quarter: 2016Q4

REPORT INFORMATION
  Report Type: Spontaneous
  Country: FR (occurrence: FR)
  Receive Date: 20161117
  Receipt Date: 20161117
  Transmission Date: 20170207
  Serious: Yes (Hospitalization)
  Sender: FDA-Public Use
  Company Number: FR-ASTRAZENECA-2016SF19703

PATIENT
  Age: 33484 Day
  Sex: Female

DRUGS (6)
  1. TOPALGIC [Suspect]
     Active Substance: TRAMADOL
     Indication: PYELONEPHRITIS
     Route: 048
     Dates: start: 20160810
  2. TRIMEBUTINE ARROW [Suspect]
     Active Substance: TRIMEBUTINE MALEATE
     Indication: ABDOMINAL PAIN
     Route: 048
  3. INEXIUM [Suspect]
     Active Substance: ESOMEPRAZOLE
     Indication: PROPHYLAXIS AGAINST GASTROINTESTINAL ULCER
     Route: 048
     Dates: start: 20160809
  4. TOPALGIC [Suspect]
     Active Substance: TRAMADOL
     Indication: PYELONEPHRITIS
     Route: 048
     Dates: start: 20160819
  5. BACTRIM [Suspect]
     Active Substance: SULFAMETHOXAZOLE\TRIMETHOPRIM
     Indication: PYELONEPHRITIS
     Route: 048
     Dates: start: 20160809
  6. DOMPERIDONE ARROW [Suspect]
     Active Substance: DOMPERIDONE
     Indication: VOMITING
     Route: 048
     Dates: start: 20160817

REACTIONS (5)
  - Rash papular [Recovered/Resolved]
  - Pyrexia [Unknown]
  - Hypothermia [Unknown]
  - Urinary tract infection [Unknown]
  - Vomiting [Unknown]

NARRATIVE: CASE EVENT DATE: 20160816
